FAERS Safety Report 6743310-5 (Version None)
Quarter: 2010Q2

REPORT INFORMATION
  Report Type: 
  Country: None (occurrence: None)
  Receive Date: 20100527
  Receipt Date: 20100518
  Transmission Date: 20101027
  Serious: Yes (Other)
  Sender: FDA-Public Use
  Company Number: IN-JNJFOC-20100509569

PATIENT
  Age: 64 Year
  Sex: Female

DRUGS (10)
  1. RISPERIDONE [Suspect]
     Indication: SCHIZOPHRENIA
     Route: 065
  2. RISPERIDONE [Suspect]
     Route: 065
  3. RISPERIDONE [Suspect]
     Route: 065
  4. RISPERIDONE [Suspect]
     Route: 065
  5. RISPERIDONE [Suspect]
     Route: 065
  6. RISPERIDONE [Suspect]
     Route: 065
  7. RISPERIDONE [Suspect]
     Route: 065
  8. RISPERIDONE [Suspect]
     Route: 065
  9. TRIFLUOPERAZINE [Suspect]
     Indication: SCHIZOPHRENIA
     Route: 065
  10. TRIFLUOPERAZINE [Suspect]
     Route: 065

REACTIONS (4)
  - PSYCHOTIC DISORDER [None]
  - RESPIRATORY DYSKINESIA [None]
  - TARDIVE DYSKINESIA [None]
  - TREATMENT NONCOMPLIANCE [None]
